FAERS Safety Report 23606036 (Version 1)
Quarter: 2024Q1

REPORT INFORMATION
  Report Type: Report from Study
  Country: US (occurrence: US)
  Receive Date: 20240307
  Receipt Date: 20240307
  Transmission Date: 20240410
  Serious: Yes (Hospitalization)
  Sender: FDA-Public Use
  Company Number: US-Eisai-EC-2024-160817

PATIENT
  Age: 70 Year
  Sex: Male

DRUGS (3)
  1. LENVIMA [Suspect]
     Active Substance: LENVATINIB
     Indication: Renal cancer
     Route: 048
     Dates: start: 202402
  2. ATIVAN [Concomitant]
     Active Substance: LORAZEPAM
  3. NYSTATIN [Concomitant]
     Active Substance: NYSTATIN

REACTIONS (5)
  - Intestinal perforation [Unknown]
  - Asthenia [Unknown]
  - Stomatitis [Unknown]
  - Candida infection [Unknown]
  - Decreased appetite [Unknown]

NARRATIVE: CASE EVENT DATE: 20240101
